FAERS Safety Report 5887900-0 (Version None)
Quarter: 2008Q3

REPORT INFORMATION
  Report Type: 
  Country: None (occurrence: None)
  Receive Date: 20080918
  Receipt Date: 20080911
  Transmission Date: 20090109
  Serious: Yes (Life-Threatening, Hospitalization, Disabling, Other)
  Sender: FDA-Public Use
  Company Number: A0747058A

PATIENT
  Age: 32 Year
  Sex: Female
  Weight: 52 kg

DRUGS (7)
  1. ARIXTRA [Suspect]
     Indication: PULMONARY EMBOLISM
     Dosage: 7.5MG PER DAY
     Route: 058
     Dates: start: 20060401, end: 20080907
  2. ASPIRIN [Concomitant]
  3. NIFEDIPINE [Concomitant]
  4. OMEPRAZOLE [Concomitant]
  5. MOTRIN [Concomitant]
     Dates: start: 20080101
  6. FERROUS SULFATE TAB [Concomitant]
     Dates: start: 20080101
  7. TYLENOL W/ CODEINE NO. 3 [Concomitant]
     Dates: start: 20080101

REACTIONS (5)
  - CHEST PAIN [None]
  - DRUG EXPOSURE DURING PREGNANCY [None]
  - LIVE BIRTH [None]
  - PREMATURE LABOUR [None]
  - PULMONARY EMBOLISM [None]
